FAERS Safety Report 10687738 (Version 1)
Quarter: 2014Q4

REPORT INFORMATION
  Report Type: Spontaneous
  Country: IN (occurrence: None)
  Receive Date: 20141230
  Receipt Date: 20141230
  Transmission Date: 20150529
  Serious: Yes (Hospitalization)
  Sender: FDA-Public Use
  Company Number: 2014HINLIT1090

PATIENT
  Age: 63 Year
  Sex: Female

DRUGS (1)
  1. LITHIUM [Suspect]
     Active Substance: LITHIUM CARBONATE
     Indication: BIPOLAR DISORDER
     Dosage: UNK

REACTIONS (10)
  - Hypotonia [None]
  - Blood creatinine increased [None]
  - Haemodialysis [None]
  - Hyporeflexia [None]
  - Toxicity to various agents [None]
  - Leukocytosis [None]
  - Hyponatraemia [None]
  - Coma [None]
  - Electroencephalogram abnormal [None]
  - Status epilepticus [None]
